FAERS Safety Report 10019372 (Version 2)
Quarter: 2014Q2

REPORT INFORMATION
  Report Type: Spontaneous
  Country: US (occurrence: US)
  Receive Date: 20140318
  Receipt Date: 20140422
  Transmission Date: 20141212
  Serious: No
  Sender: FDA-Public Use
  Company Number: US-TEVA-469311USA

PATIENT
  Sex: Male

DRUGS (6)
  1. FENTORA [Suspect]
     Indication: PAIN
     Dosage: 800 MICROGRAM DAILY;
     Route: 002
  2. FENTORA [Suspect]
     Dosage: 1600 MICROGRAM DAILY;
     Route: 002
  3. FENTANYL [Concomitant]
     Indication: DIABETIC NEUROPATHY
  4. FENTANYL [Concomitant]
     Indication: BACK PAIN
  5. OPANA ER [Concomitant]
     Indication: PAIN
     Dosage: 60 MILLIGRAM DAILY;
  6. DILAUDID [Concomitant]
     Indication: PAIN
     Dosage: 16 MILLIGRAM DAILY;

REACTIONS (1)
  - Off label use [Unknown]
